FAERS Safety Report 9731295 (Version 1)
Quarter: 2013Q4

REPORT INFORMATION
  Report Type: Spontaneous
  Country: US (occurrence: US)
  Receive Date: 20131205
  Receipt Date: 20131205
  Transmission Date: 20140711
  Serious: No
  Sender: FDA-Public Use
  Company Number: US-B.I. PHARMACEUTICALS,INC./RIDGEFIELD-2013-BI-39007BP

PATIENT
  Age: 69 Year
  Sex: Male
  Weight: 77 kg

DRUGS (16)
  1. TRADJENTA [Suspect]
     Indication: DIABETES MELLITUS
     Dosage: 5 MG
     Route: 048
     Dates: start: 20130202
  2. FLEXERIL [Concomitant]
     Indication: MUSCLE SPASMS
     Dosage: 10 MG
     Route: 048
     Dates: start: 2012
  3. GABAPENTIN [Concomitant]
     Indication: MUSCLE SPASMS
     Dosage: 600 MG
     Route: 048
     Dates: start: 20131024
  4. LANTUS [Concomitant]
     Indication: DIABETES MELLITUS
     Dosage: 14 U
     Route: 058
     Dates: start: 201308
  5. LISINOPRIL [Concomitant]
     Indication: HYPERTENSION
     Dosage: 40 MG
     Route: 048
     Dates: start: 201309
  6. MITRAZIPINE [Concomitant]
     Indication: DEPRESSION
     Dosage: 15 MG
     Route: 048
     Dates: start: 20130808
  7. ZOCOR [Concomitant]
     Indication: BLOOD CHOLESTEROL INCREASED
     Dosage: 40 MG
     Route: 048
     Dates: start: 201308
  8. AMLODIPINE [Concomitant]
     Indication: HYPERTENSION
     Dosage: 5 MG
     Route: 048
     Dates: start: 2013
  9. TRAMADOL [Concomitant]
     Indication: NECK PAIN
     Route: 048
     Dates: start: 2012
  10. TRAMADOL [Concomitant]
     Indication: PAIN IN EXTREMITY
  11. ASPIRIN [Concomitant]
     Dosage: 81 MG
     Route: 048
  12. COLACE [Concomitant]
     Indication: CONSTIPATION
     Route: 048
  13. ATORVASTATIN [Concomitant]
     Indication: BLOOD CHOLESTEROL INCREASED
     Dosage: 20 MG
     Route: 048
     Dates: start: 2013
  14. METFORMIN [Concomitant]
     Indication: DIABETES MELLITUS
     Dosage: 500 MG
     Route: 048
     Dates: start: 2010
  15. CARVEDILOL [Concomitant]
     Indication: HYPERTENSION
     Dosage: 25 MG
     Route: 048
     Dates: start: 201308
  16. CIMETIDINE [Concomitant]
     Indication: ABDOMINAL DISCOMFORT
     Route: 048
     Dates: start: 2011

REACTIONS (5)
  - Muscular weakness [Not Recovered/Not Resolved]
  - Dizziness postural [Not Recovered/Not Resolved]
  - Irritability [Not Recovered/Not Resolved]
  - Cough [Not Recovered/Not Resolved]
  - Fatigue [Not Recovered/Not Resolved]
